FAERS Safety Report 9858974 (Version 1)
Quarter: 2014Q1

REPORT INFORMATION
  Report Type: Spontaneous
  Country: US (occurrence: US)
  Receive Date: 20140131
  Receipt Date: 20140131
  Transmission Date: 20141002
  Serious: No
  Sender: FDA-Public Use
  Company Number: US-BAYER-2014-010056

PATIENT
  Age: 43 Year
  Sex: Female

DRUGS (3)
  1. NATAZIA [Suspect]
     Indication: MENSTRUAL CYCLE MANAGEMENT
     Dosage: UNK
     Route: 048
  2. NATAZIA [Suspect]
     Indication: EPISTAXIS
  3. NATAZIA [Suspect]
     Indication: CONTRACEPTION

REACTIONS (1)
  - Inappropriate schedule of drug administration [Not Recovered/Not Resolved]
